FAERS Safety Report 7866617-7 (Version None)
Quarter: 2011Q4

REPORT INFORMATION
  Report Type: 
  Country: None (occurrence: None)
  Receive Date: 20111028
  Receipt Date: 20110714
  Transmission Date: 20120403
  Serious: No
  Sender: FDA-Public Use
  Company Number: US-GLAXOSMITHKLINE-A0936833A

PATIENT
  Age: 45 Year
  Sex: Female

DRUGS (3)
  1. ADVAIR DISKUS 100/50 [Suspect]
     Indication: PRODUCT USED FOR UNKNOWN INDICATION
     Dosage: 1PUFF TWICE PER DAY
     Route: 055
  2. ATROVENT [Concomitant]
  3. PROVENTIL [Concomitant]

REACTIONS (5)
  - PARANOIA [None]
  - DYSPNOEA [None]
  - PRODUCT QUALITY ISSUE [None]
  - DYSGEUSIA [None]
  - MALAISE [None]
